FAERS Safety Report 6924147-0 (Version None)
Quarter: 2010Q3

REPORT INFORMATION
  Report Type: 
  Country: None (occurrence: None)
  Receive Date: 20100812
  Receipt Date: 20100812
  Transmission Date: 20110219
  Serious: Yes (Life-Threatening)
  Sender: FDA-Public Use
  Company Number: None

PATIENT
  Age: 45 Year
  Sex: Male
  Weight: 81.6475 kg

DRUGS (1)
  1. HUMIRA [Suspect]
     Indication: RHEUMATOID ARTHRITIS
     Dosage: 40 MG PEN INJECTION BI-WEEKLY SQ
     Route: 058
     Dates: start: 20091010, end: 20100801

REACTIONS (2)
  - CARDIAC DISORDER [None]
  - PUSTULAR PSORIASIS [None]
